FAERS Safety Report 21234713 (Version 1)
Quarter: 2022Q3

REPORT INFORMATION
  Report Type: Spontaneous
  Country: PH (occurrence: PH)
  Receive Date: 20220820
  Receipt Date: 20220820
  Transmission Date: 20221026
  Serious: Yes (Other)
  Sender: FDA-Public Use
  Company Number: PH-Accord-273939

PATIENT
  Age: 47 Year
  Sex: Male

DRUGS (1)
  1. MITOMYCIN [Suspect]
     Active Substance: MITOMYCIN
     Indication: Glaucoma surgery

REACTIONS (2)
  - Retinal vein occlusion [Not Recovered/Not Resolved]
  - Retinal artery occlusion [Not Recovered/Not Resolved]
